FAERS Safety Report 7883485-8 (Version None)
Quarter: 2011Q4

REPORT INFORMATION
  Report Type: 
  Country: None (occurrence: None)
  Receive Date: 20111102
  Receipt Date: 20101026
  Transmission Date: 20120403
  Serious: No
  Sender: FDA-Public Use
  Company Number: US-GLAXOSMITHKLINE-A0888801A

PATIENT
  Sex: Female

DRUGS (1)
  1. RYTHMOL SR [Suspect]
     Route: 048

REACTIONS (1)
  - ADVERSE REACTION [None]
